FAERS Safety Report 9294022 (Version 1)
Quarter: 2013Q1

REPORT INFORMATION
  Report Type: Spontaneous
  Country: US (occurrence: None)
  Receive Date: 20121227
  Receipt Date: 20121227
  Transmission Date: 20140127
  Serious: No
  Sender: FDA-Public Use
  Company Number: PHEH2012US010627

PATIENT
  Age: 38 Year
  Sex: Male

DRUGS (7)
  1. CLOZARIL [Suspect]
     Indication: SCHIZOPHRENIA
     Route: 048
  2. ASPIRIN (ACETYLSALICYLIC ACID) [Concomitant]
  3. COLACE (DOCUSATE SODIUM) [Concomitant]
  4. LISINOPRIL (LISINOPRIL) [Concomitant]
  5. RISPERIDONE (RISPERIDONE) [Concomitant]
  6. NITRO (GLYCERYL TRINITRATE) [Concomitant]
  7. COGENTIN (BENZATROPINE MESILATE) [Concomitant]

REACTIONS (3)
  - Dysphagia [None]
  - Drooling [None]
  - Constipation [None]
